FAERS Safety Report 10488625 (Version 2)
Quarter: 2014Q4

REPORT INFORMATION
  Report Type: Spontaneous
  Country: IT (occurrence: IT)
  Receive Date: 20141002
  Receipt Date: 20141223
  Transmission Date: 20150528
  Serious: Yes (Death)
  Sender: FDA-Public Use
  Company Number: IT-TEVA-511451ISR

PATIENT
  Age: 56 Year
  Sex: Female
  Weight: 100 kg

DRUGS (5)
  1. SODIUM VALPROATE + VALPROIC ACID [Concomitant]
     Indication: PRODUCT USED FOR UNKNOWN INDICATION
     Route: 048
     Dates: start: 20121201, end: 20140506
  2. GABAPENTIN. [Suspect]
     Active Substance: GABAPENTIN
     Indication: PRODUCT USED FOR UNKNOWN INDICATION
     Dosage: 900 MILLIGRAM DAILY;
     Dates: start: 20121201, end: 20140506
  3. TEGRETOL [Suspect]
     Active Substance: CARBAMAZEPINE
     Indication: PRODUCT USED FOR UNKNOWN INDICATION
     Dosage: 2 DOSAGE FORMS DAILY;
     Route: 048
     Dates: start: 20121201, end: 20140506
  4. AMITRIPTYLIN HYDROCHLORIDE [Concomitant]
     Indication: PRODUCT USED FOR UNKNOWN INDICATION
     Dates: start: 20121201, end: 20140506
  5. NORTRIPTYLINE HYDROCHLORIDE. [Concomitant]
     Active Substance: NORTRIPTYLINE HYDROCHLORIDE
     Indication: PRODUCT USED FOR UNKNOWN INDICATION
     Route: 048
     Dates: start: 20121201, end: 20140506

REACTIONS (2)
  - Ileus paralytic [Fatal]
  - Anticonvulsant drug level above therapeutic [Fatal]

NARRATIVE: CASE EVENT DATE: 20140506
